FAERS Safety Report 16797760 (Version 1)
Quarter: 2019Q3

REPORT INFORMATION
  Report Type: Report from Study
  Country: None (occurrence: CO)
  Receive Date: 20190912
  Receipt Date: 20190912
  Transmission Date: 20191005
  Serious: Yes (Death, Hospitalization)
  Sender: FDA-Public Use
  Company Number: CO-ABBVIE-19K-036-2921984-00

PATIENT
  Sex: Male

DRUGS (1)
  1. ZEMPLAR [Suspect]
     Active Substance: PARICALCITOL
     Indication: HYPERPARATHYROIDISM SECONDARY
     Route: 048
     Dates: start: 2019, end: 2019

REACTIONS (4)
  - Decreased appetite [Fatal]
  - Fatigue [Fatal]
  - Mobility decreased [Fatal]
  - Liver disorder [Fatal]

NARRATIVE: CASE EVENT DATE: 20190724
